FAERS Safety Report 7074623-8 (Version None)
Quarter: 2010Q4

REPORT INFORMATION
  Report Type: 
  Country: None (occurrence: None)
  Receive Date: 20101029
  Receipt Date: 20101022
  Transmission Date: 20110411
  Serious: Yes (Life-Threatening, Hospitalization, Other)
  Sender: FDA-Public Use
  Company Number: A0888327A

PATIENT
  Age: 16 Year
  Sex: Female

DRUGS (2)
  1. LAMICTAL [Suspect]
     Route: 048
  2. ZONEGRAN [Concomitant]

REACTIONS (5)
  - ERYTHEMA [None]
  - PNEUMONIA [None]
  - STEVENS-JOHNSON SYNDROME [None]
  - STOMATITIS [None]
  - TRACHEOSTOMY [None]
